FAERS Safety Report 14342503 (Version 1)
Quarter: 2018Q1

REPORT INFORMATION
  Report Type: Spontaneous
  Country: JP (occurrence: JP)
  Receive Date: 20180102
  Receipt Date: 20180102
  Transmission Date: 20180509
  Serious: Yes (Other)
  Sender: FDA-Public Use
  Company Number: JP-HQ SPECIALTY-JP-2017INT000450

PATIENT
  Sex: Female

DRUGS (2)
  1. CARBOPLATIN. [Suspect]
     Active Substance: CARBOPLATIN
     Indication: NEOPLASM MALIGNANT
     Dosage: (AUC 6.0 MG/ML ? MIN) ON DAY 1, EVERY 3 WEEKS
     Route: 042
  2. PACLITAXEL. [Suspect]
     Active Substance: PACLITAXEL
     Indication: NEOPLASM MALIGNANT
     Dosage: 80 MG/M2, ON DAY 1, DAY 8 AND DAY 15, EVERY 3 WEEKS
     Route: 042

REACTIONS (1)
  - Hypokalaemia [Recovered/Resolved]
